FAERS Safety Report 17164182 (Version 1)
Quarter: 2019Q4

REPORT INFORMATION
  Report Type: Spontaneous
  Country: SE (occurrence: SE)
  Receive Date: 20191217
  Receipt Date: 20191217
  Transmission Date: 20200122
  Serious: Yes (Hospitalization)
  Sender: FDA-Public Use
  Company Number: SE-PFIZER INC-2019538602

PATIENT
  Age: 42 Year
  Sex: Male

DRUGS (3)
  1. MELATONIN [Suspect]
     Active Substance: MELATONIN
     Dosage: 60 MG, UNK
     Route: 048
     Dates: start: 20180828, end: 20180828
  2. PROPAVAN [Suspect]
     Active Substance: PROPIOMAZINE
     Dosage: 1.5 G, UNK
     Route: 048
     Dates: start: 20180828, end: 20180828
  3. SERTRALINE HCL [Suspect]
     Active Substance: SERTRALINE HYDROCHLORIDE
     Dosage: 2 G, UNK
     Route: 048
     Dates: start: 20180828, end: 20180828

REACTIONS (3)
  - Intentional self-injury [Unknown]
  - Somnolence [Unknown]
  - Intentional overdose [Unknown]

NARRATIVE: CASE EVENT DATE: 20180828
